FAERS Safety Report 6512037-7 (Version None)
Quarter: 2009Q4

REPORT INFORMATION
  Report Type: 
  Country: None (occurrence: None)
  Receive Date: 20091222
  Receipt Date: 20090519
  Transmission Date: 20100525
  Serious: No
  Sender: FDA-Public Use
  Company Number: US-ASTRAZENECA-2009UW12997

PATIENT
  Sex: Female

DRUGS (3)
  1. CRESTOR [Suspect]
     Indication: BLOOD CHOLESTEROL
     Route: 048
  2. DIOVAN [Concomitant]
     Indication: HYPERTENSION
  3. JANUVIA [Concomitant]
     Indication: DIABETES MELLITUS

REACTIONS (1)
  - PAIN IN EXTREMITY [None]
